FAERS Safety Report 5423176-6 (Version None)
Quarter: 2007Q3

REPORT INFORMATION
  Report Type: 
  Country: None (occurrence: None)
  Receive Date: 20070730
  Receipt Date: 20061218
  Transmission Date: 20080115
  Serious: Yes (Other)
  Sender: FDA-Public Use
  Company Number: 200616260BWH

PATIENT
  Age: 41 Year
  Sex: Female
  Weight: 68.9467 kg

DRUGS (1)
  1. AVELOX [Suspect]
     Indication: EAR INFECTION
     Dosage: ONCE, ORAL
     Route: 048
     Dates: start: 20061025

REACTIONS (7)
  - ABDOMINAL PAIN [None]
  - BURNING SENSATION [None]
  - ERYTHEMA [None]
  - HYPERSENSITIVITY [None]
  - PHARYNGEAL OEDEMA [None]
  - PRURITUS [None]
  - TREMOR [None]
